FAERS Safety Report 16074370 (Version 3)
Quarter: 2019Q1

REPORT INFORMATION
  Report Type: Report from Study
  Country: KR (occurrence: KR)
  Receive Date: 20190314
  Receipt Date: 20190329
  Transmission Date: 20190418
  Serious: Yes (Hospitalization)
  Sender: FDA-Public Use
  Company Number: KR-REGENERON PHARMACEUTICALS, INC.-2019-22049

PATIENT

DRUGS (10)
  1. CEMIPLIMAB [Suspect]
     Active Substance: CEMIPLIMAB
     Indication: NON-SMALL CELL LUNG CANCER
     Dosage: 350 MG, Q3W
     Route: 042
     Dates: start: 20190228, end: 20190228
  2. CRESTOR [Concomitant]
     Active Substance: ROSUVASTATIN CALCIUM
     Indication: HYPERLIPIDAEMIA
     Dosage: 5 MG, QD
     Route: 048
  3. COUGH SYRUP                        /00872901/ [Concomitant]
     Indication: COUGH
     Dosage: 1 PK, TID
     Route: 048
     Dates: start: 20190214
  4. DIABEX [Concomitant]
     Active Substance: METFORMIN HYDROCHLORIDE
     Indication: DIABETES MELLITUS
     Dosage: 1000 MG, QD
     Route: 048
     Dates: start: 2008
  5. MUTERAN [Concomitant]
     Active Substance: ACETYLCYSTEINE
     Indication: PNEUMONIA
     Dosage: 200 MG, TID
     Route: 048
     Dates: start: 20190202, end: 20190214
  6. ROSUZET [Concomitant]
     Active Substance: EZETIMIBE\ROSUVASTATIN
     Indication: DIABETES MELLITUS
  7. EZETROL [Concomitant]
     Active Substance: EZETIMIBE
     Indication: HYPERLIPIDAEMIA
     Dosage: 1000 MG, QD
     Route: 048
  8. MEIACT [Concomitant]
     Active Substance: CEFDITOREN PIVOXIL
     Indication: PNEUMONIA
  9. ERDOS [Concomitant]
     Active Substance: ERDOSTEINE
     Indication: COUGH
     Dosage: 1 CAPSULE, TID
     Route: 048
     Dates: start: 20190214
  10. MEGACE F [Concomitant]
     Indication: DECREASED APPETITE
     Dosage: 5 ML, QD
     Route: 048
     Dates: start: 20190214

REACTIONS (5)
  - Dyspnoea [Recovered/Resolved]
  - Hyperkalaemia [Recovered/Resolved]
  - Lung infection [Recovering/Resolving]
  - Dyspnoea [Recovering/Resolving]
  - Anaemia [Recovering/Resolving]

NARRATIVE: CASE EVENT DATE: 20190307
